FAERS Safety Report 9049762 (Version 1)
Quarter: 2013Q1

REPORT INFORMATION
  Report Type: Spontaneous
  Country: US (occurrence: US)
  Receive Date: 20130205
  Receipt Date: 20130205
  Transmission Date: 20140127
  Serious: Yes (Other)
  Sender: FDA-Public Use
  Company Number: US-BAYER-2013-014798

PATIENT
  Age: 34 Year
  Sex: Female
  Weight: 96.6 kg

DRUGS (2)
  1. YASMIN [Suspect]
     Indication: CONTRACEPTION
  2. VICODIN [Concomitant]

REACTIONS (1)
  - Deep vein thrombosis [None]
